FAERS Safety Report 15322694 (Version 1)
Quarter: 2018Q3

REPORT INFORMATION
  Report Type: Spontaneous
  Country: US (occurrence: US)
  Receive Date: 20180827
  Receipt Date: 20180827
  Transmission Date: 20181010
  Serious: Yes (Other)
  Sender: FDA-Public Use
  Company Number: US-GLAXOSMITHKLINE-US2018GSK154216

PATIENT
  Sex: Female

DRUGS (3)
  1. LAMOTRIGINE PROLONGED?RELEASE TABLET [Suspect]
     Active Substance: LAMOTRIGINE
     Indication: EPILEPSY
  2. LAMICTAL [Suspect]
     Active Substance: LAMOTRIGINE
     Indication: EPILEPSY
  3. LAMICTAL XR [Suspect]
     Active Substance: LAMOTRIGINE
     Indication: EPILEPSY

REACTIONS (2)
  - Seizure [Unknown]
  - Drug dose omission [Unknown]
